FAERS Safety Report 21640056 (Version 1)
Quarter: 2022Q4

REPORT INFORMATION
  Report Type: Spontaneous
  Country: JP (occurrence: JP)
  Receive Date: 20221124
  Receipt Date: 20221124
  Transmission Date: 20230113
  Serious: Yes (Hospitalization)
  Sender: FDA-Public Use
  Company Number: JP-JNJFOC-20221143889

PATIENT
  Age: 3 Year
  Weight: 13 kg

DRUGS (3)
  1. TOPIRAMATE [Suspect]
     Active Substance: TOPIRAMATE
     Indication: Epilepsy
     Dosage: 5 TABLETS OF 50 MG
     Route: 048
  2. TOPIRAMATE [Suspect]
     Active Substance: TOPIRAMATE
     Dosage: 7.5 TABLETS OF 50 MG.
     Route: 048
  3. TOPIRAMATE [Suspect]
     Active Substance: TOPIRAMATE
     Route: 048

REACTIONS (3)
  - Hospitalisation [Unknown]
  - Therapeutic product effect incomplete [Unknown]
  - Drug level decreased [Unknown]
